FAERS Safety Report 18292948 (Version 1)
Quarter: 2020Q3

REPORT INFORMATION
  Report Type: Spontaneous
  Country: ES (occurrence: ES)
  Receive Date: 20200922
  Receipt Date: 20200922
  Transmission Date: 20201103
  Serious: Yes (Other)
  Sender: FDA-Public Use
  Company Number: NVSC2020ES255523

PATIENT
  Age: 10 Year
  Sex: Male

DRUGS (3)
  1. LOSARTAN. [Suspect]
     Active Substance: LOSARTAN
     Indication: CONGENITAL SKIN DISORDER
     Dosage: 12.5 MG, QD
     Route: 065
  2. MYCOPHENOLATE MOFETIL. [Suspect]
     Active Substance: MYCOPHENOLATE MOFETIL
     Indication: CONGENITAL SKIN DISORDER
     Dosage: 750 MG, Q12H
     Route: 065
  3. LOSARTAN. [Suspect]
     Active Substance: LOSARTAN
     Dosage: 25 MG, QD
     Route: 065

REACTIONS (3)
  - Congenital skin disorder [Unknown]
  - Product use in unapproved indication [Unknown]
  - Drug ineffective [Unknown]
